FAERS Safety Report 8287402-0 (Version None)
Quarter: 2012Q2

REPORT INFORMATION
  Report Type: 
  Country: None (occurrence: None)
  Receive Date: 20120416
  Receipt Date: 20120412
  Transmission Date: 20120825
  Serious: Yes (Other)
  Sender: FDA-Public Use
  Company Number: AU-TEVA-333206ISR

PATIENT
  Sex: Female

DRUGS (1)
  1. COPAXONE [Suspect]
     Dates: start: 20120403, end: 20120406

REACTIONS (8)
  - SLEEP DISORDER [None]
  - ARTHRALGIA [None]
  - TINNITUS [None]
  - FEELING COLD [None]
  - SKIN DISCOMFORT [None]
  - APHAGIA [None]
  - NAUSEA [None]
  - NERVOUSNESS [None]
